FAERS Safety Report 11845384 (Version 7)
Quarter: 2016Q2

REPORT INFORMATION
  Report Type: Spontaneous
  Country: US (occurrence: US)
  Receive Date: 20151217
  Receipt Date: 20160504
  Transmission Date: 20160815
  Serious: Yes (Hospitalization, Other)
  Sender: FDA-Public Use
  Company Number: US-ACTELION-A-US2015-128646

PATIENT
  Age: 60 Year
  Sex: Female

DRUGS (6)
  1. OPSUMIT [Suspect]
     Active Substance: MACITENTAN
     Indication: PULMONARY ARTERIAL HYPERTENSION
     Dosage: 10 MG, QD
     Route: 048
     Dates: start: 20140103
  2. VELETRI [Suspect]
     Active Substance: EPOPROSTENOL
     Indication: PULMONARY ARTERIAL HYPERTENSION
     Dosage: 52 NG/KG, PER MIN
     Route: 042
     Dates: start: 20141204
  3. WARFARIN [Concomitant]
     Active Substance: WARFARIN
  4. VELETRI [Suspect]
     Active Substance: EPOPROSTENOL
     Dosage: UNK
     Route: 042
  5. OPSUMIT [Suspect]
     Active Substance: MACITENTAN
     Dosage: 10 MG, QD
     Route: 048
  6. REVATIO [Concomitant]
     Active Substance: SILDENAFIL CITRATE

REACTIONS (24)
  - Pain in jaw [Unknown]
  - Gallbladder disorder [Unknown]
  - Pyrexia [Unknown]
  - Hepatic enzyme increased [Unknown]
  - Biopsy breast abnormal [Unknown]
  - Nausea [Unknown]
  - Drug administration error [Unknown]
  - Headache [Unknown]
  - Catheter placement [Unknown]
  - Movement disorder [Unknown]
  - Influenza like illness [Unknown]
  - Breast cancer [Unknown]
  - Breast operation [Unknown]
  - Bacteraemia [Unknown]
  - Device related infection [Unknown]
  - Post procedural swelling [Unknown]
  - Post procedural contusion [Unknown]
  - Speech disorder [Unknown]
  - Postoperative wound infection [Unknown]
  - Cholecystectomy [Unknown]
  - Lymphadenectomy [Unknown]
  - Chills [Unknown]
  - Post procedural haemorrhage [Unknown]
  - Diarrhoea [Unknown]

NARRATIVE: CASE EVENT DATE: 20151204
